FAERS Safety Report 20840217 (Version 8)
Quarter: 2025Q1

REPORT INFORMATION
  Report Type: Report from Study
  Country: US (occurrence: US)
  Receive Date: 20220517
  Receipt Date: 20250212
  Transmission Date: 20250409
  Serious: Yes (Hospitalization, Other)
  Sender: TAKEDA
  Company Number: US-TAKEDA-US201943317

PATIENT
  Sex: Male
  Weight: 90 kg

DRUGS (19)
  1. LANADELUMAB [Suspect]
     Active Substance: LANADELUMAB
     Indication: Hereditary angioedema
     Dosage: UNK UNK, Q2WEEKS
  2. LANADELUMAB [Suspect]
     Active Substance: LANADELUMAB
     Indication: Immune system disorder
     Dosage: 300 MILLIGRAM, MONTHLY
     Dates: start: 20191010
  3. LANADELUMAB [Suspect]
     Active Substance: LANADELUMAB
     Dosage: 300 MILLIGRAM, Q2WEEKS
  4. LANADELUMAB [Suspect]
     Active Substance: LANADELUMAB
     Dosage: 300 MILLIGRAM, Q4WEEKS
  5. LANADELUMAB [Suspect]
     Active Substance: LANADELUMAB
     Dosage: 300 MILLIGRAM, Q4WEEKS
  6. KEYTRUDA [Concomitant]
     Active Substance: PEMBROLIZUMAB
  7. EPINEPHRINE [Concomitant]
     Active Substance: EPINEPHRINE
  8. ALBUTEROL SULFATE [Concomitant]
     Active Substance: ALBUTEROL SULFATE
  9. BUPROPION HYDROCHLORIDE [Concomitant]
     Active Substance: BUPROPION HYDROCHLORIDE
  10. VITAMIN D3 [Concomitant]
     Active Substance: CHOLECALCIFEROL
  11. PREDNISONE [Concomitant]
     Active Substance: PREDNISONE
  12. NICOTINE [Concomitant]
     Active Substance: NICOTINE
  13. AMLODIPINE BESYLATE [Concomitant]
     Active Substance: AMLODIPINE BESYLATE
  14. OMEPRAZOLE [Concomitant]
     Active Substance: OMEPRAZOLE
  15. ICATIBANT [Concomitant]
     Active Substance: ICATIBANT ACETATE
     Indication: Hereditary angioedema
  16. NORVASC [Concomitant]
     Active Substance: AMLODIPINE BESYLATE
  17. METOPROLOL [Concomitant]
     Active Substance: METOPROLOL
     Indication: Product used for unknown indication
  18. EPIPEN [Concomitant]
     Active Substance: EPINEPHRINE
  19. SODIUM SUCCINATE [Concomitant]
     Active Substance: SODIUM SUCCINATE HEXAHYDRATE

REACTIONS (6)
  - Renal cancer [Unknown]
  - Diabetic ketoacidosis [Unknown]
  - Hereditary angioedema [Unknown]
  - COVID-19 [Unknown]
  - Injection site discharge [Unknown]
  - Product dose omission issue [Unknown]
